FAERS Safety Report 5312004-5 (Version None)
Quarter: 2007Q2

REPORT INFORMATION
  Report Type: 
  Country: None (occurrence: None)
  Receive Date: 20070430
  Receipt Date: 20060503
  Transmission Date: 20071010
  Serious: No
  Sender: FDA-Public Use
  Company Number: 2006UW08784

PATIENT
  Age: 55 Year
  Sex: Female
  Weight: 68 kg

DRUGS (3)
  1. NEXIUM [Suspect]
     Indication: GASTROOESOPHAGEAL REFLUX DISEASE
  2. BLOOD PRESSURE PILL [Suspect]
     Indication: HYPERTENSION
  3. BLOOD PRESSURE PILL [Concomitant]

REACTIONS (1)
  - DRUG INEFFECTIVE [None]
